FAERS Safety Report 9969967 (Version 1)
Quarter: 2014Q1

REPORT INFORMATION
  Report Type: Spontaneous
  Country: US (occurrence: None)
  Receive Date: 20140131
  Receipt Date: 20140131
  Transmission Date: 20141002
  Serious: Yes (Hospitalization)
  Sender: FDA-Public Use
  Company Number: 074339

PATIENT
  Age: 55 Year
  Sex: Male
  Weight: 104.3 kg

DRUGS (3)
  1. KEPPRA [Suspect]
     Dosage: 500 MG, BID, LIQUID FORM
  2. DAILY VITAMINS [Concomitant]
  3. TYLENOL /00020001/ [Concomitant]

REACTIONS (2)
  - Grand mal convulsion [None]
  - Hypersomnia [None]
